FAERS Safety Report 8542923-8 (Version None)
Quarter: 2012Q3

REPORT INFORMATION
  Report Type: 
  Country: None (occurrence: None)
  Receive Date: 20120716
  Receipt Date: 20120703
  Transmission Date: 20120928
  Serious: Yes (Hospitalization)
  Sender: FDA-Public Use
  Company Number: UTC-018861

PATIENT
  Age: 67 Year
  Sex: Female
  Weight: 52.73 kg

DRUGS (5)
  1. TYVASO [Suspect]
  2. COUMADIN [Concomitant]
  3. TYVASO [Suspect]
     Indication: PULMONARY HYPERTENSION
     Dosage: 18 TO 54 MCG (4 IN 1 D) INHALATION
     Route: 055
     Dates: start: 20110107, end: 20110120
  4. TYVASO [Suspect]
     Indication: PULMONARY ARTERIAL HYPERTENSION
     Dosage: 18 TO 54 MCG (4 IN 1 D) INHALATION
     Route: 055
     Dates: start: 20110107, end: 20110120
  5. REVATIO [Concomitant]

REACTIONS (3)
  - HEPATITIS [None]
  - ANAEMIA [None]
  - DRUG-INDUCED LIVER INJURY [None]
